FAERS Safety Report 18490094 (Version 1)
Quarter: 2020Q4

REPORT INFORMATION
  Report Type: Spontaneous
  Country: US (occurrence: US)
  Receive Date: 20201111
  Receipt Date: 20201111
  Transmission Date: 20210114
  Serious: No
  Sender: FDA-Public Use
  Company Number: US-JNJFOC-20201051068

PATIENT
  Age: 77 Year
  Sex: Female
  Weight: 73 kg

DRUGS (8)
  1. SELEXIPAG [Suspect]
     Active Substance: SELEXIPAG
     Dosage: AT T+24 HOURS SHE TOOK 100% OF HER TARGET SELEXIPAG DOSE
     Route: 048
  2. TREPROSTINIL. [Suspect]
     Active Substance: TREPROSTINIL
     Dosage: AT T+6 HOURS SHE TOOK 50% OF HER MIDDAY TREPROSTINIL DOSE (3 MG)
  3. TREPROSTINIL. [Suspect]
     Active Substance: TREPROSTINIL
     Dosage: AT THE START OF HER TRANSITION (T) SHE TOOK 100% OF HER MORNING TREPROSTINIL DOSE. AT T+6 HOURS SHE
     Route: 058
  4. MACITENTAN [Suspect]
     Active Substance: MACITENTAN
     Indication: PULMONARY ARTERIAL HYPERTENSION
     Route: 048
  5. TREPROSTINIL. [Suspect]
     Active Substance: TREPROSTINIL
     Indication: PULMONARY ARTERIAL HYPERTENSION
     Route: 048
  6. SILDENAFIL. [Suspect]
     Active Substance: SILDENAFIL
     Route: 048
  7. SELEXIPAG [Suspect]
     Active Substance: SELEXIPAG
     Indication: PULMONARY ARTERIAL HYPERTENSION
     Dosage: AT T+12 HOURS SHE TOOK 70% OF HER TARGET DOSE
     Route: 048
  8. TREPROSTINIL. [Suspect]
     Active Substance: TREPROSTINIL
     Route: 048

REACTIONS (5)
  - Weight decreased [Unknown]
  - Headache [Unknown]
  - Abdominal pain [Recovering/Resolving]
  - Diarrhoea [Recovering/Resolving]
  - Gastrointestinal disorder [Recovering/Resolving]
